FAERS Safety Report 4917811-6 (Version None)
Quarter: 2006Q1

REPORT INFORMATION
  Report Type: 
  Country: None (occurrence: None)
  Receive Date: 20060221
  Receipt Date: 20060213
  Transmission Date: 20060701
  Serious: Yes (Other)
  Sender: FDA-Public Use
  Company Number: JP-AVENTIS-200611379GDDC

PATIENT
  Age: 66 Year
  Sex: Female

DRUGS (7)
  1. GLIMEPIRIDE [Suspect]
  2. DIPHENYLHYDANTOIN [Suspect]
     Indication: EPILEPSY
  3. DIPHENYLHYDANTOIN [Suspect]
  4. PERINDOPRIL ERBUMINE [Suspect]
  5. FAMOTIDINE [Suspect]
  6. CETRAXATE HYDROCHLORIDE [Suspect]
  7. DANTROLENE SODIUM [Suspect]

REACTIONS (8)
  - APLASIA PURE RED CELL [None]
  - CEREBRAL INFARCTION [None]
  - COMA [None]
  - DRUG INTERACTION [None]
  - EPILEPSY [None]
  - HAEMOLYTIC ANAEMIA [None]
  - INTRACRANIAL ANEURYSM [None]
  - SUBARACHNOID HAEMORRHAGE [None]
